FAERS Safety Report 9435839 (Version 1)
Quarter: 2013Q3

REPORT INFORMATION
  Report Type: Spontaneous
  Country: US (occurrence: None)
  Receive Date: 20130801
  Receipt Date: 20130801
  Transmission Date: 20140515
  Serious: Yes (Hospitalization, Other)
  Sender: FDA-Public Use
  Company Number: None

PATIENT
  Age: 90 Year
  Sex: Female

DRUGS (7)
  1. OMEPRAZOLE (GENERI PRILOSEC) [Suspect]
     Indication: NAUSEA
     Dosage: 30 BEFORE MEALS MOUTH
     Route: 048
     Dates: start: 20130218, end: 20130703
  2. OMEPRAZOLE (GENERI PRILOSEC) [Suspect]
     Indication: ABDOMINAL DISCOMFORT
     Dosage: 30 BEFORE MEALS MOUTH
     Route: 048
     Dates: start: 20130218, end: 20130703
  3. PEPCID [Concomitant]
  4. FAMOTIDE [Concomitant]
  5. NORVASC/AMLODIPINE [Concomitant]
  6. PREDNISONE [Concomitant]
  7. AMBIEN [Concomitant]

REACTIONS (2)
  - Nausea [None]
  - Renal failure [None]
